FAERS Safety Report 9243309 (Version 1)
Quarter: 2013Q2

REPORT INFORMATION
  Report Type: Spontaneous
  Country: US (occurrence: US)
  Receive Date: 20130419
  Receipt Date: 20130419
  Transmission Date: 20140414
  Serious: No
  Sender: FDA-Public Use
  Company Number: US-009507513-1304USA010622

PATIENT
  Age: 55 Year
  Sex: Female
  Weight: 68.27 kg

DRUGS (2)
  1. CLARITIN-D 24 HOUR [Suspect]
     Indication: SEASONAL ALLERGY
     Dosage: UNK, PRN
     Route: 048
  2. CLARITIN-D 24 HOUR [Suspect]
     Dosage: 20 MG, ONCE
     Route: 048
     Dates: start: 20130408, end: 20130408

REACTIONS (1)
  - Accidental overdose [Unknown]
